FAERS Safety Report 7370571 (Version 2)
Quarter: 2020Q3

REPORT INFORMATION
  Report Type: Spontaneous
  Country: AR (occurrence: AR)
  Receive Date: 20100429
  Receipt Date: 20100510
  Transmission Date: 20201105
  Serious: Yes (Other)
  Sender: FDA-Public Use
  Company Number: GXKR2010AR04457

PATIENT
  Age: 86 Year
  Sex: Female

DRUGS (10)
  1. ALENDRONIC ACID [Suspect]
     Active Substance: ALENDRONIC ACID
     Indication: OSTEOPOROSIS
     Dosage: 70 MG/WEEK
  2. IRON [Concomitant]
     Active Substance: IRON
     Indication: ANAEMIA
  3. IBANDRONIC ACID. [Suspect]
     Active Substance: IBANDRONIC ACID
     Indication: OSTEOPOROSIS
     Dosage: 150 MG/MONTH
  4. SIMVASTATIN. [Concomitant]
     Active Substance: SIMVASTATIN
     Indication: HYPERCHOLESTEROLAEMIA
     Dosage: 10 MG/DAY
  5. LEVOTHYROXINE. [Concomitant]
     Active Substance: LEVOTHYROXINE
     Indication: HYPOTHYROIDISM
     Dosage: 88 UG/DAY
  6. CALCIUM [Concomitant]
     Active Substance: CALCIUM
  7. PAMIDRONATE DISODIUM. [Suspect]
     Active Substance: PAMIDRONATE DISODIUM
     Indication: OSTEOPOROSIS
     Dosage: 300 MG/DAY
     Route: 048
     Dates: start: 1990
  8. SODIUM MONOFLUOROPHOSPHATE. [Concomitant]
     Active Substance: SODIUM MONOFLUOROPHOSPHATE
     Indication: OSTEOPOROSIS
     Dosage: 26 MG/DAY
  9. FOLIC ACID. [Concomitant]
     Active Substance: FOLIC ACID
     Indication: ANAEMIA
  10. VITAMIN D2 [Concomitant]
     Active Substance: ERGOCALCIFEROL

REACTIONS (2)
  - Pelvic fracture [Recovering/Resolving]
  - Bone metabolism disorder [Recovering/Resolving]
